FAERS Safety Report 22772408 (Version 4)
Quarter: 2024Q2

REPORT INFORMATION
  Report Type: Report from Study
  Country: MX (occurrence: MX)
  Receive Date: 20230801
  Receipt Date: 20240615
  Transmission Date: 20240716
  Serious: Yes (Other)
  Sender: FDA-Public Use
  Company Number: MX-002147023-NVSC2022MX298905

PATIENT
  Sex: Female
  Weight: 88 kg

DRUGS (2)
  1. GILENYA [Suspect]
     Active Substance: FINGOLIMOD HYDROCHLORIDE
     Indication: Multiple sclerosis
     Dosage: 0.5 MG, QD
     Route: 048
     Dates: start: 202002
  2. GILENYA [Suspect]
     Active Substance: FINGOLIMOD HYDROCHLORIDE
     Dosage: 0.5 MG, QD
     Route: 048
     Dates: start: 202203

REACTIONS (28)
  - Cerebral atrophy [Not Recovered/Not Resolved]
  - Anxiety [Not Recovered/Not Resolved]
  - Mood altered [Not Recovered/Not Resolved]
  - Sleep disorder [Recovering/Resolving]
  - Abdominal pain upper [Recovered/Resolved]
  - Hyperchlorhydria [Recovering/Resolving]
  - Renal pain [Not Recovered/Not Resolved]
  - Pain [Recovering/Resolving]
  - Asthenopia [Not Recovered/Not Resolved]
  - Constipation [Not Recovered/Not Resolved]
  - Weight increased [Not Recovered/Not Resolved]
  - Panic attack [Unknown]
  - Claustrophobia [Not Recovered/Not Resolved]
  - Food poisoning [Unknown]
  - Gastrointestinal infection [Unknown]
  - Depression [Unknown]
  - Migraine [Not Recovered/Not Resolved]
  - Fatigue [Unknown]
  - Headache [Not Recovered/Not Resolved]
  - Back pain [Not Recovered/Not Resolved]
  - Diarrhoea [Recovered/Resolved]
  - Influenza [Recovered/Resolved with Sequelae]
  - Oropharyngeal pain [Recovered/Resolved with Sequelae]
  - Cough [Recovered/Resolved with Sequelae]
  - Pharyngitis [Recovered/Resolved]
  - Nasal discomfort [Recovered/Resolved with Sequelae]
  - Secretion discharge [Recovered/Resolved with Sequelae]
  - Productive cough [Recovered/Resolved with Sequelae]

NARRATIVE: CASE EVENT DATE: 20200101
